FAERS Safety Report 19501168 (Version 4)
Quarter: 2021Q4

REPORT INFORMATION
  Report Type: Report from Study
  Country: US (occurrence: US)
  Receive Date: 20210707
  Receipt Date: 20211012
  Transmission Date: 20220303
  Serious: Yes (Hospitalization)
  Sender: FDA-Public Use
  Company Number: US-NOVARTISPH-NVSC2021US152311

PATIENT
  Sex: Male

DRUGS (2)
  1. ENTRESTO [Suspect]
     Active Substance: SACUBITRIL\VALSARTAN
     Indication: Product used for unknown indication
     Dosage: 50MG(24/26MG)
     Route: 048
     Dates: start: 20210623
  2. ENTRESTO [Suspect]
     Active Substance: SACUBITRIL\VALSARTAN
     Indication: Cardiac failure chronic

REACTIONS (6)
  - Asthenia [Recovering/Resolving]
  - Dyspnoea [Unknown]
  - Blood pressure systolic decreased [Unknown]
  - Swelling [Unknown]
  - Fatigue [Unknown]
  - Cough [Unknown]
